FAERS Safety Report 16592774 (Version 1)
Quarter: 2019Q3

REPORT INFORMATION
  Report Type: Spontaneous
  Country: DK (occurrence: DK)
  Receive Date: 20190718
  Receipt Date: 20190718
  Transmission Date: 20191004
  Serious: Yes (Hospitalization)
  Sender: FDA-Public Use
  Company Number: DK-BAXTER-2019BAX013669

PATIENT
  Age: 64 Year
  Sex: Female

DRUGS (3)
  1. SENDOXAN [Suspect]
     Active Substance: CYCLOPHOSPHAMIDE
     Indication: INVASIVE DUCTAL BREAST CARCINOMA
     Dosage: DOSE, STRENGTH ARE NOT KNOWN, GIVEN ON 23 APRIL 2009, 30 MAY 2009, 10 JUNE 2009, AND 12 AUGUST 2009
     Route: 065
     Dates: start: 20090423, end: 20090812
  2. EPIRUBICIN [Suspect]
     Active Substance: EPIRUBICIN
     Indication: INVASIVE DUCTAL BREAST CARCINOMA
     Dosage: DOSE, STRENGTH NOT KNOWN. GIVEN ON 23 APRIL 2009, 30 MAY 2009, 10 JUNE 2009, AND 12 AUGUST 2009
     Route: 065
     Dates: start: 20090423, end: 20090812
  3. TAXOTERE [Concomitant]
     Active Substance: DOCETAXEL
     Indication: INVASIVE DUCTAL BREAST CARCINOMA
     Dosage: RECEIVED 3 CYCLES. UNKNOWN DOSE. STRENGTH: 40 MG/ML.
     Route: 065
     Dates: start: 2009, end: 2009

REACTIONS (7)
  - Cough [Recovered/Resolved]
  - Chest pain [Recovered/Resolved]
  - Dizziness [Recovered/Resolved]
  - Dyspnoea [Recovering/Resolving]
  - Malaise [Recovered/Resolved]
  - Cardiac failure [Recovered/Resolved]
  - Chest discomfort [Recovered/Resolved]

NARRATIVE: CASE EVENT DATE: 2018
